FAERS Safety Report 5395468-0 (Version None)
Quarter: 2007Q3

REPORT INFORMATION
  Report Type: 
  Country: None (occurrence: None)
  Receive Date: 20070724
  Receipt Date: 20070719
  Transmission Date: 20080115
  Serious: Yes (Other)
  Sender: FDA-Public Use
  Company Number: B0479780A

PATIENT
  Age: 31 Year
  Sex: Male

DRUGS (1)
  1. AUGMENTIN '125' [Suspect]
     Indication: MASTITIS
     Dosage: 875MG TWICE PER DAY
     Dates: start: 20070404

REACTIONS (3)
  - ABDOMINAL PAIN [None]
  - HEPATITIS [None]
  - PRURITUS [None]
